FAERS Safety Report 23979045 (Version 3)
Quarter: 2024Q3

REPORT INFORMATION
  Report Type: Spontaneous
  Country: US (occurrence: None)
  Receive Date: 20240615
  Receipt Date: 20240712
  Transmission Date: 20241017
  Serious: Yes (Life-Threatening)
  Sender: ASTRAZENECA
  Company Number: 2024A135431

PATIENT
  Age: 768 Month
  Sex: Male

DRUGS (1)
  1. BREZTRI [Suspect]
     Active Substance: BUDESONIDE\FORMOTEROL\GLYCOPYRROLATE
     Indication: Chronic obstructive pulmonary disease
     Route: 055
     Dates: start: 20240320

REACTIONS (5)
  - Dyspnoea [Recovered/Resolved]
  - Wrong technique in device usage process [Unknown]
  - Drug dose omission by device [Unknown]
  - Device delivery system issue [Unknown]
  - Device malfunction [Unknown]

NARRATIVE: CASE EVENT DATE: 20240401
